FAERS Safety Report 5225756-X (Version None)
Quarter: 2007Q1

REPORT INFORMATION
  Report Type: 
  Country: None (occurrence: None)
  Receive Date: 20070131
  Receipt Date: 20070131
  Transmission Date: 20070707
  Serious: Yes (Hospitalization)
  Sender: FDA-Public Use
  Company Number: None

PATIENT
  Age: 87 Year
  Sex: Male
  Weight: 104.3273 kg

DRUGS (11)
  1. OXYCODONE HCL [Suspect]
     Dosage: PRN PO
     Route: 048
     Dates: start: 20060117, end: 20070130
  2. OXYCONTIN [Suspect]
     Dosage: BID PO
     Route: 048
     Dates: start: 20060117, end: 20070130
  3. FERROUS SULFATE TAB [Concomitant]
  4. ASPIRIN [Concomitant]
  5. OMEPRAZOLE [Concomitant]
  6. POTASSIUM ACETATE [Concomitant]
  7. SIMVASTATIN [Concomitant]
  8. FUROSEMIDE [Concomitant]
  9. LISINOPRIL [Concomitant]
  10. COMBIVENT INH [Concomitant]
  11. TRAVOPROST [Concomitant]

REACTIONS (5)
  - DIARRHOEA [None]
  - FATIGUE [None]
  - LETHARGY [None]
  - SOMNOLENCE [None]
  - THERAPEUTIC AGENT TOXICITY [None]
